FAERS Safety Report 10962943 (Version 1)
Quarter: 2015Q1

REPORT INFORMATION
  Report Type: Spontaneous
  Country: AU (occurrence: AU)
  Receive Date: 20150327
  Receipt Date: 20150327
  Transmission Date: 20150721
  Serious: Yes (Hospitalization)
  Sender: FDA-Public Use
  Company Number: AU-ABBVIE-15P-008-1367848-00

PATIENT
  Age: 64 Year
  Sex: Female

DRUGS (2)
  1. VALPROATE SODIUM. [Suspect]
     Active Substance: VALPROATE SODIUM
     Indication: PRODUCT USED FOR UNKNOWN INDICATION
     Route: 065
     Dates: start: 2002
  2. LAMOTRIGINE. [Suspect]
     Active Substance: LAMOTRIGINE
     Indication: PRODUCT USED FOR UNKNOWN INDICATION
     Route: 065
     Dates: start: 2003

REACTIONS (15)
  - Personality change [Not Recovered/Not Resolved]
  - Vascular dementia [Not Recovered/Not Resolved]
  - Aggression [Not Recovered/Not Resolved]
  - Seizure [Recovered/Resolved]
  - Bradyphrenia [Not Recovered/Not Resolved]
  - Confusional state [Not Recovered/Not Resolved]
  - Dementia [Not Recovered/Not Resolved]
  - Memory impairment [Not Recovered/Not Resolved]
  - Cognitive disorder [Not Recovered/Not Resolved]
  - Postural tremor [Not Recovered/Not Resolved]
  - Unevaluable event [Recovered/Resolved]
  - Postictal paralysis [Recovered/Resolved]
  - Sleep disorder [Not Recovered/Not Resolved]
  - Aphasia [Recovered/Resolved]
  - Fear [Not Recovered/Not Resolved]
